FAERS Safety Report 9746142 (Version 1)
Quarter: 2013Q4

REPORT INFORMATION
  Report Type: Report from Study
  Country: US (occurrence: US)
  Receive Date: 20131211
  Receipt Date: 20131211
  Transmission Date: 20140711
  Serious: Yes (Other)
  Sender: FDA-Public Use
  Company Number: US-PURDUE-USA-2013-0109401

PATIENT
  Sex: Male

DRUGS (2)
  1. OXY CR TAB [Suspect]
     Indication: PRODUCT USED FOR UNKNOWN INDICATION
     Dosage: 240 MG,EVERY AM
     Dates: start: 20131121
  2. OXY CR TAB [Suspect]
     Dosage: 160 MG, EVERY PM
     Dates: start: 20131121

REACTIONS (1)
  - Skull fracture [Not Recovered/Not Resolved]
